FAERS Safety Report 8600417-5 (Version None)
Quarter: 2012Q3

REPORT INFORMATION
  Report Type: 
  Country: None (occurrence: None)
  Receive Date: 20120803
  Receipt Date: 20120723
  Transmission Date: 20120928
  Serious: Yes (Other)
  Sender: FDA-Public Use
  Company Number: GGEL20120700864

PATIENT
  Age: 22 Year
  Sex: Female

DRUGS (1)
  1. LAMOTRIGINE [Suspect]
     Indication: TEMPORAL LOBE EPILEPSY
     Dosage: 550 MILLIGRAM, 2 IN 1 D

REACTIONS (14)
  - ATAXIA [None]
  - ALTERED STATE OF CONSCIOUSNESS [None]
  - ANTICONVULSANT DRUG LEVEL BELOW THERAPEUTIC [None]
  - MATERNAL EXPOSURE DURING PREGNANCY [None]
  - LOSS OF CONSCIOUSNESS [None]
  - HYPOREFLEXIA [None]
  - FALSE POSITIVE INVESTIGATION RESULT [None]
  - ELECTROCARDIOGRAM ABNORMAL [None]
  - FALL [None]
  - NYSTAGMUS [None]
  - TOXICITY TO VARIOUS AGENTS [None]
  - CRANIOCEREBRAL INJURY [None]
  - NAUSEA [None]
  - VERTIGO [None]
